FAERS Safety Report 9628611 (Version 3)
Quarter: 2014Q1

REPORT INFORMATION
  Report Type: Spontaneous
  Country: BR (occurrence: BR)
  Receive Date: 20131017
  Receipt Date: 20140130
  Transmission Date: 20141002
  Serious: Yes (Other)
  Sender: FDA-Public Use
  Company Number: BR-JNJFOC-20131007769

PATIENT
  Sex: Female
  Weight: 83 kg

DRUGS (10)
  1. REMICADE [Suspect]
     Indication: RHEUMATOID ARTHRITIS
     Dosage: DOSE WAS INCREASED FROM 3 TO 4 AMPOULES
     Route: 042
     Dates: end: 201305
  2. REMICADE [Suspect]
     Indication: RHEUMATOID ARTHRITIS
     Route: 042
     Dates: start: 20131121
  3. REMICADE [Suspect]
     Indication: RHEUMATOID ARTHRITIS
     Route: 042
     Dates: start: 20131009, end: 20131009
  4. REMICADE [Suspect]
     Indication: RHEUMATOID ARTHRITIS
     Route: 042
     Dates: start: 2008
  5. INSULINE NPH [Concomitant]
     Indication: DIABETES MELLITUS
     Route: 065
  6. CAPTOPRIL [Concomitant]
     Indication: BLOOD PRESSURE INCREASED
     Route: 065
  7. METFORMIN [Concomitant]
     Indication: DIABETES MELLITUS
     Route: 065
  8. LEXOTAN [Concomitant]
     Indication: FEELING OF RELAXATION
     Route: 065
  9. HYDROCHLOROTHIAZIDE [Concomitant]
     Indication: DIURETIC THERAPY
     Route: 065
  10. PREDSIM [Concomitant]
     Indication: PAIN
     Route: 065

REACTIONS (2)
  - Depression [Unknown]
  - Lymphadenopathy [Unknown]
